FAERS Safety Report 4524039-0 (Version None)
Quarter: 2004Q4

REPORT INFORMATION
  Report Type: 
  Country: None (occurrence: None)
  Receive Date: 20041209
  Receipt Date: 20041123
  Transmission Date: 20050328
  Serious: Yes (Hospitalization, Disabling)
  Sender: FDA-Public Use
  Company Number: S04-DEN-07956-01

PATIENT
  Age: 52 Year
  Sex: Female
  Weight: 60 kg

DRUGS (2)
  1. CIPRAMIL (CITALOPRAM) [Suspect]
     Indication: DEPRESSION
     Dosage: 40 MG QD PO
     Route: 048
     Dates: start: 20020401, end: 20040601
  2. REMERON [Concomitant]

REACTIONS (2)
  - AGGRESSION [None]
  - DEPERSONALISATION [None]
